FAERS Safety Report 9121318 (Version 1)
Quarter: 2013Q1

REPORT INFORMATION
  Report Type: Report from Study
  Country: BE (occurrence: BE)
  Receive Date: 20130225
  Receipt Date: 20130225
  Transmission Date: 20140127
  Serious: Yes (Death)
  Sender: FDA-Public Use
  Company Number: BE-ROCHE-1192673

PATIENT
  Age: 49 Year
  Sex: Female
  Weight: 52 kg

DRUGS (17)
  1. TRASTUZUMAB [Suspect]
     Indication: BREAST CANCER METASTATIC
     Route: 065
     Dates: start: 200801
  2. TRASTUZUMAB [Suspect]
     Route: 065
     Dates: start: 200805
  3. TRASTUZUMAB [Suspect]
     Route: 065
     Dates: start: 200806, end: 200807
  4. TRASTUZUMAB [Suspect]
     Route: 065
     Dates: start: 200906
  5. CAPECITABINE [Suspect]
     Indication: BREAST CANCER METASTATIC
     Route: 065
     Dates: start: 201208
  6. ADO-TRASTUZUMAB EMTANSINE [Suspect]
     Indication: BREAST CANCER METASTATIC
     Route: 042
     Dates: start: 20121112, end: 20121112
  7. LAROTAXEL [Suspect]
     Indication: BREAST CANCER METASTATIC
     Route: 065
     Dates: start: 200801
  8. LAROTAXEL [Suspect]
     Route: 065
     Dates: start: 200805
  9. CYCLOPHOSPHAMIDE [Suspect]
     Indication: BREAST CANCER METASTATIC
     Dosage: 4X144MG=576 MG
     Route: 065
     Dates: start: 200802, end: 200804
  10. CYCLOPHOSPHAMIDE [Suspect]
     Route: 065
     Dates: start: 200801
  11. TAXOL [Suspect]
     Indication: BREAST CANCER METASTATIC
     Route: 065
     Dates: start: 200806, end: 200807
  12. ARIMIDEX [Suspect]
     Indication: BREAST CANCER METASTATIC
     Route: 065
     Dates: start: 200811, end: 201107
  13. LAPATINIB [Suspect]
     Indication: BREAST CANCER METASTATIC
     Route: 065
  14. AROMASIN [Suspect]
     Indication: BREAST CANCER METASTATIC
     Route: 065
  15. TAXOTERE [Suspect]
     Indication: BREAST CANCER METASTATIC
     Route: 065
     Dates: start: 200801
  16. NAVELBINE [Suspect]
     Indication: BREAST CANCER METASTATIC
     Route: 065
  17. EPIRUBICIN HYDROCHLORIDE [Suspect]
     Indication: BREAST CANCER METASTATIC
     Dosage: 4X144MG=576 MG
     Route: 065
     Dates: start: 200802, end: 200804

REACTIONS (1)
  - Death [Fatal]
